FAERS Safety Report 4768253-8 (Version None)
Quarter: 2005Q3

REPORT INFORMATION
  Report Type: 
  Country: None (occurrence: None)
  Receive Date: 20050913
  Receipt Date: 20050830
  Transmission Date: 20060218
  Serious: Yes (Hospitalization)
  Sender: FDA-Public Use
  Company Number: PHFR2005GB02872

PATIENT
  Age: 62 Year
  Sex: Male

DRUGS (10)
  1. DICLOFENAC SODIUM [Suspect]
     Indication: PAIN
     Dosage: 50 MG, TID, ORAL
     Route: 048
     Dates: end: 20050804
  2. WARFARIN (NGX) (WARFARIN) [Suspect]
     Indication: ATRIAL FIBRILLATION
     Dosage: ORAL
     Route: 048
     Dates: end: 20050804
  3. ACETYLSALICYLIC ACID (NGX) (ACETYLSALICYIC ACID) [Suspect]
     Indication: MYOCARDIAL INFARCTION
     Dosage: 75 MG, OD, ORAL
     Route: 048
     Dates: end: 20050804
  4. GTN (GLYCERYL TRINITRATE) [Concomitant]
  5. CANDESARTAN (CANDESARTAN) [Concomitant]
  6. NICORANDIL (NICORANDIL) [Concomitant]
  7. ISOSORBIDE MONONITRATE [Concomitant]
  8. ADIZEM-XL (DILTIAZEM HYDROCHLORIDE) [Concomitant]
  9. DIGOXIN [Concomitant]
  10. SIMVASTATIN [Concomitant]

REACTIONS (8)
  - BLOOD UREA ABNORMAL [None]
  - CHEST DISCOMFORT [None]
  - CIRCULATORY COLLAPSE [None]
  - DYSPNOEA [None]
  - EROSIVE DUODENITIS [None]
  - GASTRIC ULCER [None]
  - GASTRITIS EROSIVE [None]
  - HEART RATE INCREASED [None]
